FAERS Safety Report 9317819 (Version 1)
Quarter: 2013Q2

REPORT INFORMATION
  Report Type: Spontaneous
  Country: US (occurrence: US)
  Receive Date: 20130530
  Receipt Date: 20130530
  Transmission Date: 20140414
  Serious: No
  Sender: FDA-Public Use
  Company Number: US-GLAXOSMITHKLINE-A0984786A

PATIENT
  Age: 48 Year
  Sex: Female

DRUGS (3)
  1. VENTOLIN [Suspect]
     Indication: ASTHMA
     Dosage: 2PUFF FOUR TIMES PER DAY
     Route: 055
     Dates: start: 20120716
  2. TESSALON [Concomitant]
  3. UNKNOWN MEDICATION [Concomitant]

REACTIONS (3)
  - Feeling abnormal [Unknown]
  - Chest discomfort [Unknown]
  - Cough [Unknown]
